FAERS Safety Report 18253085 (Version 3)
Quarter: 2020Q4

REPORT INFORMATION
  Report Type: Spontaneous
  Country: GB (occurrence: GB)
  Receive Date: 20200910
  Receipt Date: 20201127
  Transmission Date: 20210113
  Serious: Yes (Hospitalization)
  Sender: FDA-Public Use
  Company Number: GB-VERTEX PHARMACEUTICALS-2020-017960

PATIENT
  Age: 37 Year
  Sex: Male
  Weight: 51.5 kg

DRUGS (23)
  1. THIAMINE. [Concomitant]
     Active Substance: THIAMINE
  2. AVAMYS [Concomitant]
     Active Substance: FLUTICASONE FUROATE
  3. FEXOFENADINE [FEXOFENADINE HYDROCHLORIDE] [Concomitant]
  4. VITAMIN E [Concomitant]
     Active Substance: .ALPHA.-TOCOPHEROL
  5. KALYDECO [Suspect]
     Active Substance: IVACAFTOR
     Indication: CYSTIC FIBROSIS
     Dosage: 150 MG, QD (DAILY AT NIGHT)
     Route: 048
     Dates: start: 201912, end: 20200821
  6. AZITHROMYCIN ANHYDROUS. [Concomitant]
     Active Substance: AZITHROMYCIN ANHYDROUS
  7. VITAMIN K [MENADIONE] [Concomitant]
     Active Substance: MENADIONE
  8. AZTREONAM. [Concomitant]
     Active Substance: AZTREONAM
  9. TOBRAMYCIN. [Concomitant]
     Active Substance: TOBRAMYCIN
  10. DEOXYRIBONUCLEIC ACID [Concomitant]
     Active Substance: DEOXYRIBONUCLIEC ACID
  11. TERBUTALINE [Concomitant]
     Active Substance: TERBUTALINE
  12. SYMBICORT [Concomitant]
     Active Substance: BUDESONIDE\FORMOTEROL FUMARATE DIHYDRATE
  13. VITAMIN D [COLECALCIFEROL] [Concomitant]
     Active Substance: CHOLECALCIFEROL
  14. ALENDRONIC ACID [Concomitant]
     Active Substance: ALENDRONIC ACID
  15. VITAMIN A [RETINOL ACETATE] [Concomitant]
  16. SLOW SODIUM [Concomitant]
  17. BUSCOPAN [Concomitant]
     Active Substance: BUTYLSCOPOLAMINE BROMIDE
  18. CALCIUM [Concomitant]
     Active Substance: CALCIUM
  19. OMEPRAZOLE. [Concomitant]
     Active Substance: OMEPRAZOLE
  20. SYMKEVI [Suspect]
     Active Substance: IVACAFTOR\TEZACAFTOR
     Indication: CYSTIC FIBROSIS
     Dosage: 1 DOSAGE FORM (100 MG TEZACAFTOR/150 MG IVACAFTOR), DAILY MORNING
     Route: 048
     Dates: start: 201912, end: 20200821
  21. NACL [Concomitant]
     Active Substance: SODIUM CHLORIDE
  22. NOVORAPID [Concomitant]
     Active Substance: INSULIN ASPART
  23. CREON [Concomitant]
     Active Substance: PANCRELIPASE AMYLASE\PANCRELIPASE LIPASE\PANCRELIPASE PROTEASE

REACTIONS (2)
  - Infective pulmonary exacerbation of cystic fibrosis [Unknown]
  - Weight decreased [Recovering/Resolving]

NARRATIVE: CASE EVENT DATE: 202003
